FAERS Safety Report 9999591 (Version 1)
Quarter: 2014Q1

REPORT INFORMATION
  Report Type: Spontaneous
  Country: CA (occurrence: CA)
  Receive Date: 20140312
  Receipt Date: 20140312
  Transmission Date: 20141002
  Serious: Yes (Death)
  Sender: FDA-Public Use
  Company Number: CA-009507513-1403CAN003842

PATIENT
  Sex: Male

DRUGS (2)
  1. SINEMET [Suspect]
     Route: 065
  2. CLOZARIL [Suspect]
     Route: 065

REACTIONS (5)
  - Pneumonia aspiration [Fatal]
  - Dystonia [Unknown]
  - Catatonia [Unknown]
  - Neurodegenerative disorder [Unknown]
  - Drug ineffective [Unknown]
